FAERS Safety Report 23328113 (Version 1)
Quarter: 2023Q4

REPORT INFORMATION
  Report Type: Spontaneous
  Country: US (occurrence: US)
  Receive Date: 20231221
  Receipt Date: 20231221
  Transmission Date: 20240109
  Serious: Yes (Hospitalization, Other)
  Sender: FDA-Public Use
  Company Number: US-HALOZYME THERAPEUTICS, INC.-2023-US-SUM-05758

PATIENT

DRUGS (2)
  1. SUMATRIPTAN [Suspect]
     Active Substance: SUMATRIPTAN
     Indication: Migraine
  2. NAPROXEN [Concomitant]
     Active Substance: NAPROXEN
     Indication: Migraine

REACTIONS (1)
  - Subdural haematoma [Recovered/Resolved]
